FAERS Safety Report 8319280-5 (Version None)
Quarter: 2012Q2

REPORT INFORMATION
  Report Type: 
  Country: None (occurrence: None)
  Receive Date: 20120426
  Receipt Date: 20120426
  Transmission Date: 20120825
  Serious: Yes (Hospitalization)
  Sender: FDA-Public Use
  Company Number: None

PATIENT
  Sex: Male
  Weight: 104 kg

DRUGS (2)
  1. ERBITUX [Suspect]
     Dosage: 1709 MG
     Dates: end: 20111214
  2. ELOXATIN [Suspect]
     Dosage: 114 MG
     Dates: end: 20111207

REACTIONS (1)
  - PNEUMONITIS [None]
